FAERS Safety Report 7326112-0 (Version None)
Quarter: 2011Q1

REPORT INFORMATION
  Report Type: 
  Country: None (occurrence: None)
  Receive Date: 20110302
  Receipt Date: 20110228
  Transmission Date: 20110831
  Serious: Yes (Disabling, Other)
  Sender: FDA-Public Use
  Company Number: FR-ROCHE-760886

PATIENT
  Sex: Female
  Weight: 59 kg

DRUGS (5)
  1. LERCAN [Concomitant]
  2. AOTAL [Concomitant]
  3. AVLOCARDYL [Concomitant]
     Dosage: DRUG REPORTED: AVLOCARDYL 160
  4. BONIVA [Suspect]
     Indication: OSTEOPOROSIS
     Dosage: DOSE: 1 INJECTION
     Route: 042
     Dates: start: 20110211
  5. FLUOXETINE [Concomitant]

REACTIONS (2)
  - EPICONDYLITIS [None]
  - INFLUENZA LIKE ILLNESS [None]
